FAERS Safety Report 4276042-6 (Version None)
Quarter: 2004Q1

REPORT INFORMATION
  Report Type: 
  Country: None (occurrence: None)
  Receive Date: 20040121
  Receipt Date: 20030708
  Transmission Date: 20041129
  Serious: No
  Sender: FDA-Public Use
  Company Number: US-GLAXOSMITHKLINE-A0416629A

PATIENT
  Age: 83 Year
  Sex: Female

DRUGS (3)
  1. VALTREX [Suspect]
     Indication: EYE DISORDER
     Dosage: 1G TWICE PER DAY
     Route: 048
     Dates: start: 20030706, end: 20030706
  2. COUMADIN [Concomitant]
  3. TRIFLURIDINE [Concomitant]
     Route: 047

REACTIONS (4)
  - CONDITION AGGRAVATED [None]
  - DIZZINESS [None]
  - HALLUCINATION [None]
  - LISTLESS [None]
